FAERS Safety Report 8103434-7 (Version None)
Quarter: 2012Q1

REPORT INFORMATION
  Report Type: 
  Country: None (occurrence: None)
  Receive Date: 20120201
  Receipt Date: 20120126
  Transmission Date: 20120608
  Serious: Yes (Other)
  Sender: FDA-Public Use
  Company Number: US-PFIZER INC-2012022746

PATIENT
  Sex: Female
  Weight: 64.399 kg

DRUGS (9)
  1. GEODON [Suspect]
     Indication: DEPRESSION
     Dosage: 40 MG, DAILY
     Route: 048
  2. GEODON [Suspect]
     Indication: ANXIETY
  3. NEXIUM [Concomitant]
     Indication: GASTROOESOPHAGEAL REFLUX DISEASE
     Dosage: 40 MG, DAILY
  4. DIOVAN [Concomitant]
     Indication: BLOOD PRESSURE ABNORMAL
     Dosage: 160 MG, DAILY
  5. KLONOPIN [Concomitant]
     Dosage: UNK, AS NEEDED
     Dates: start: 20110101, end: 20110101
  6. ZOLOFT [Concomitant]
     Indication: DEPRESSION
     Dosage: 50 MG, DAILY
     Dates: start: 20110101
  7. WELLBUTRIN [Concomitant]
     Indication: DEPRESSION
     Dosage: 300 MG, DAILY
     Dates: end: 20110101
  8. WELLBUTRIN [Concomitant]
     Dosage: 150 MG, DAILY
     Dates: start: 20110101
  9. KLONOPIN [Concomitant]
     Indication: DEPRESSION
     Dosage: 0.5 MG, AS NEEDED
     Dates: end: 20110101

REACTIONS (2)
  - DRUG DEPENDENCE [None]
  - WITHDRAWAL SYNDROME [None]
